FAERS Safety Report 12084134 (Version 1)
Quarter: 2016Q1

REPORT INFORMATION
  Report Type: Spontaneous
  Country: JP (occurrence: JP)
  Receive Date: 20160217
  Receipt Date: 20160217
  Transmission Date: 20160526
  Serious: Yes (Other)
  Sender: FDA-Public Use
  Company Number: JP-EISAI MEDICAL RESEARCH-E7389-05247-SPO-JP

PATIENT
  Age: 59 Year
  Sex: Female

DRUGS (4)
  1. TOREMIFENE [Concomitant]
     Active Substance: TOREMIFENE
     Dosage: UNKNOWN
     Dates: start: 201301
  2. CAPECITABINE. [Suspect]
     Active Substance: CAPECITABINE
     Dosage: REDUCED BY 30% (DOSE UNKNOWN)
     Route: 065
     Dates: start: 201312
  3. HALAVEN [Suspect]
     Active Substance: ERIBULIN MESYLATE
     Indication: BREAST CANCER STAGE IV
     Dosage: UNKNOWN
     Route: 041
     Dates: start: 201303, end: 2013
  4. CAPECITABINE. [Suspect]
     Active Substance: CAPECITABINE
     Indication: BREAST CANCER STAGE IV
     Dosage: UNKNOWN
     Route: 065
     Dates: start: 201306, end: 2013

REACTIONS (2)
  - Bone marrow failure [Recovering/Resolving]
  - Fatigue [Recovering/Resolving]

NARRATIVE: CASE EVENT DATE: 2013
